FAERS Safety Report 11889934 (Version 1)
Quarter: 2016Q1

REPORT INFORMATION
  Report Type: Spontaneous
  Country: US (occurrence: US)
  Receive Date: 20160105
  Receipt Date: 20160105
  Transmission Date: 20160526
  Serious: No
  Sender: FDA-Public Use
  Company Number: US-PERRIGO-15US004816

PATIENT
  Age: 69 Year
  Sex: Female
  Weight: 58.96 kg

DRUGS (2)
  1. ALKA-SELTZER PLUS COLD + COUGH     /01572201/ [Concomitant]
     Indication: NASOPHARYNGITIS
     Dosage: UNK
     Route: 065
     Dates: start: 201504
  2. GUAIFENESIN 600 MG 498 [Suspect]
     Active Substance: GUAIFENESIN
     Indication: RESPIRATORY TRACT CONGESTION
     Dosage: 600 MG, EVERY 4 HOURS
     Route: 048
     Dates: start: 20150505, end: 20150506

REACTIONS (1)
  - Inappropriate schedule of drug administration [Recovered/Resolved]

NARRATIVE: CASE EVENT DATE: 20150505
